FAERS Safety Report 25556642 (Version 1)
Quarter: 2025Q3

REPORT INFORMATION
  Report Type: Spontaneous
  Country: US (occurrence: None)
  Receive Date: 20250715
  Receipt Date: 20250715
  Transmission Date: 20251020
  Serious: Yes (Disabling)
  Sender: FDA-CTU
  Company Number: None

PATIENT
  Age: 67 Year
  Sex: Female
  Weight: 69.3 kg

DRUGS (6)
  1. LEVOFLOXACIN [Suspect]
     Active Substance: LEVOFLOXACIN
     Indication: Influenza
     Dosage: 7 TABLET(S) DAILY ORAL
     Route: 048
     Dates: start: 20250212, end: 20250219
  2. LEVOFLOXACIN [Suspect]
     Active Substance: LEVOFLOXACIN
     Indication: Pneumonia
  3. UNSPECIFIED INGREDIENT [Concomitant]
     Active Substance: UNSPECIFIED INGREDIENT
  4. pain medication v [Concomitant]
  5. VITAMIN C [Concomitant]
     Active Substance: ASCORBIC ACID
  6. ZINC [Concomitant]
     Active Substance: ZINC

REACTIONS (9)
  - Arthralgia [None]
  - Pain in extremity [None]
  - Back pain [None]
  - Pain in extremity [None]
  - Paraesthesia [None]
  - Hypoaesthesia [None]
  - Depressed mood [None]
  - Hypertension [None]
  - Anxiety [None]

NARRATIVE: CASE EVENT DATE: 20250212
